FAERS Safety Report 7422043-6 (Version None)
Quarter: 2011Q2

REPORT INFORMATION
  Report Type: 
  Country: None (occurrence: None)
  Receive Date: 20110418
  Receipt Date: 20110412
  Transmission Date: 20111010
  Serious: Yes (Hospitalization)
  Sender: FDA-Public Use
  Company Number: US-ABBOTT-11P-163-0718561-00

PATIENT
  Sex: Female
  Weight: 95.34 kg

DRUGS (10)
  1. GEMFIBROZIL [Concomitant]
     Indication: BLOOD CHOLESTEROL INCREASED
  2. METFORMIN [Concomitant]
     Indication: DIABETES MELLITUS
  3. HUMALOG [Concomitant]
     Indication: DIABETES MELLITUS
     Dosage: 50/50; 30 UNITS IN AM,  20 UNITS AT NITE
  4. HUMIRA [Suspect]
     Indication: RHEUMATOID ARTHRITIS
     Dates: start: 20080101
  5. LISINOPRIL [Concomitant]
     Indication: HYPERTENSION
  6. METOPROLOL [Concomitant]
     Indication: HYPERTENSION
  7. OXYCODONE [Concomitant]
     Indication: FIBROMYALGIA
  8. OXYCODONE [Concomitant]
     Indication: ARTHRALGIA
  9. PRAVASTATIN [Concomitant]
     Indication: CARDIAC DISORDER
  10. HYDROCHLOROTHIAZIDE [Concomitant]
     Indication: HYPERTENSION
     Dosage: 25 ONCE

REACTIONS (5)
  - CHEST PAIN [None]
  - INCREASED UPPER AIRWAY SECRETION [None]
  - DYSPNOEA [None]
  - ANXIETY [None]
  - MYOCARDIAL INFARCTION [None]
